FAERS Safety Report 5804173-5 (Version None)
Quarter: 2008Q3

REPORT INFORMATION
  Report Type: 
  Country: None (occurrence: None)
  Receive Date: 20080709
  Receipt Date: 20080627
  Transmission Date: 20090109
  Serious: Yes (Congenital Anomaly)
  Sender: FDA-Public Use
  Company Number: GB-JNJFOC-20080701552

PATIENT

DRUGS (3)
  1. TOPIRAMATE [Suspect]
     Indication: DRUG EXPOSURE DURING PREGNANCY
  2. PHENOBARBITAL TAB [Suspect]
     Indication: DRUG EXPOSURE DURING PREGNANCY
  3. LAMOTRIGINE [Suspect]
     Indication: DRUG EXPOSURE DURING PREGNANCY

REACTIONS (5)
  - CLEFT LIP [None]
  - CLEFT PALATE [None]
  - HIP DYSPLASIA [None]
  - PLAGIOCEPHALY [None]
  - TORTICOLLIS [None]
